FAERS Safety Report 10145975 (Version 1)
Quarter: 2014Q2

REPORT INFORMATION
  Report Type: Spontaneous
  Country: TR (occurrence: TR)
  Receive Date: 20140501
  Receipt Date: 20140501
  Transmission Date: 20141212
  Serious: Yes (Other)
  Sender: FDA-Public Use
  Company Number: PHHY2014TR052285

PATIENT
  Sex: 0

DRUGS (4)
  1. CICLOSPORIN [Suspect]
     Indication: ACUTE GRAFT VERSUS HOST DISEASE
  2. FLUDARA [Suspect]
  3. BUSULFAN [Suspect]
  4. ANTITHYMOCYTE IMMUNOGLOBULIN [Suspect]

REACTIONS (1)
  - Guillain-Barre syndrome [Recovered/Resolved]
